FAERS Safety Report 18564590 (Version 1)
Quarter: 2020Q4

REPORT INFORMATION
  Report Type: Spontaneous
  Country: FR (occurrence: FR)
  Receive Date: 20201201
  Receipt Date: 20201201
  Transmission Date: 20210114
  Serious: Yes (Hospitalization, Other)
  Sender: FDA-Public Use
  Company Number: FR-BRISTOL-MYERS SQUIBB COMPANY-BMS-2020-100474

PATIENT
  Age: 69 Year
  Sex: Female
  Weight: 46 kg

DRUGS (2)
  1. OPDIVO [Suspect]
     Active Substance: NIVOLUMAB
     Indication: HEPATOCELLULAR CARCINOMA
     Dosage: 45 MILLIGRAM, QD
     Route: 041
     Dates: start: 20200804, end: 20200804
  2. YERVOY [Suspect]
     Active Substance: IPILIMUMAB
     Indication: HEPATOCELLULAR CARCINOMA
     Dosage: 135 MILLIGRAM
     Route: 041
     Dates: start: 20200804, end: 20200804

REACTIONS (4)
  - Cholestasis [Recovering/Resolving]
  - Abdominal pain upper [Recovered/Resolved]
  - Intentional product use issue [Unknown]
  - Hepatocellular injury [Recovered/Resolved]

NARRATIVE: CASE EVENT DATE: 20200820
